FAERS Safety Report 5298347-2 (Version None)
Quarter: 2007Q2

REPORT INFORMATION
  Report Type: 
  Country: None (occurrence: None)
  Receive Date: 20070409
  Receipt Date: 20070326
  Transmission Date: 20071010
  Serious: Yes (Hospitalization)
  Sender: FDA-Public Use
  Company Number: 2007-00859

PATIENT
  Age: 1 Year

DRUGS (1)
  1. VELCADE [Suspect]
     Indication: MULTIPLE MYELOMA
     Dosage: 2.7 MG, UNK, INTRAVENOUS
     Route: 042
     Dates: start: 20061121, end: 20061124

REACTIONS (7)
  - ABASIA [None]
  - ARRHYTHMIA [None]
  - CONVULSION [None]
  - DEMYELINATING POLYNEUROPATHY [None]
  - GUILLAIN-BARRE SYNDROME [None]
  - PAIN [None]
  - POLYNEUROPATHY [None]
